FAERS Safety Report 18641071 (Version 1)
Quarter: 2020Q4

REPORT INFORMATION
  Report Type: Spontaneous
  Country: JP (occurrence: JP)
  Receive Date: 20201221
  Receipt Date: 20201221
  Transmission Date: 20210114
  Serious: Yes (Death)
  Sender: FDA-Public Use
  Company Number: JP-REGENERON PHARMACEUTICALS, INC.-2020-95585

PATIENT

DRUGS (3)
  1. EYLEA [Suspect]
     Active Substance: AFLIBERCEPT
     Indication: AGE-RELATED MACULAR DEGENERATION
     Dosage: ONCE
     Route: 031
     Dates: start: 20200904, end: 20200904
  2. EYLEA [Suspect]
     Active Substance: AFLIBERCEPT
     Dosage: ONCE
     Route: 031
     Dates: start: 20201107, end: 20201107
  3. EYLEA [Suspect]
     Active Substance: AFLIBERCEPT
     Dosage: ONCE
     Route: 031
     Dates: start: 20201002, end: 20201002

REACTIONS (3)
  - Traumatic intracranial haemorrhage [Fatal]
  - Fall [Unknown]
  - Contusion [Unknown]

NARRATIVE: CASE EVENT DATE: 2020
